FAERS Safety Report 16188032 (Version 1)
Quarter: 2019Q2

REPORT INFORMATION
  Report Type: Spontaneous
  Country: US (occurrence: US)
  Receive Date: 20190412
  Receipt Date: 20190412
  Transmission Date: 20190711
  Serious: No
  Sender: FDA-Public Use
  Company Number: US-ASTRAZENECA-2019SE43235

PATIENT
  Age: 5910 Day
  Sex: Male
  Weight: 42.6 kg

DRUGS (1)
  1. FASENRA [Suspect]
     Active Substance: BENRALIZUMAB
     Indication: ASTHMA
     Dosage: FIRST THREE MONTHS GETS ONE SHOT AND THEN AFTER THAT EVERY 8 WEEKS
     Route: 058
     Dates: start: 20190304

REACTIONS (2)
  - Malaise [Unknown]
  - Abdominal pain upper [Not Recovered/Not Resolved]

NARRATIVE: CASE EVENT DATE: 20190310
